FAERS Safety Report 24295442 (Version 1)
Quarter: 2024Q3

REPORT INFORMATION
  Report Type: Spontaneous
  Country: DK (occurrence: DK)
  Receive Date: 20240908
  Receipt Date: 20240908
  Transmission Date: 20241017
  Serious: Yes (Hospitalization)
  Sender: DR REDDYS
  Company Number: DK-GERMAN-SPO/DNK/24/0012790

PATIENT

DRUGS (7)
  1. DAPTOMYCIN [Suspect]
     Active Substance: DAPTOMYCIN
     Indication: Enterococcal infection
  2. LINEZOLID [Concomitant]
     Active Substance: LINEZOLID
     Indication: Enterococcal infection
  3. VANCOMYCIN [Concomitant]
     Active Substance: VANCOMYCIN
     Indication: Pancreatitis necrotising
     Route: 042
  4. MEROPENEM [Concomitant]
     Active Substance: MEROPENEM
     Indication: Pancreatitis necrotising
     Route: 042
  5. CIPROFLOXACIN [Concomitant]
     Active Substance: CIPROFLOXACIN
     Indication: Pancreatitis necrotising
     Route: 042
  6. METRONIDAZOLE [Concomitant]
     Active Substance: METRONIDAZOLE
     Indication: Pancreatitis necrotising
     Route: 042
  7. FLUCONAZOLE [Concomitant]
     Active Substance: FLUCONAZOLE
     Indication: Antifungal treatment
     Route: 042

REACTIONS (1)
  - Drug resistance [Unknown]
